FAERS Safety Report 8588025-6 (Version None)
Quarter: 2012Q3

REPORT INFORMATION
  Report Type: 
  Country: None (occurrence: None)
  Receive Date: 20120731
  Receipt Date: 20120718
  Transmission Date: 20120928
  Serious: Yes (Hospitalization)
  Sender: FDA-Public Use
  Company Number: IMP_05944_2012

PATIENT
  Age: 34 Year
  Sex: Male

DRUGS (5)
  1. QUETIAPINE [Concomitant]
  2. ACAMPROSATE [Concomitant]
  3. BUPROPION HCL [Suspect]
     Dosage: 100 MG QD, ORAL; 150 MG 1X/12 HOURS ORAL
     Route: 048
  4. BUSPIRONE HCL [Concomitant]
  5. ZALEPLON [Concomitant]

REACTIONS (7)
  - AGITATION [None]
  - AGGRESSION [None]
  - HEPATIC STEATOSIS [None]
  - WITHDRAWAL SYNDROME [None]
  - HALLUCINATIONS, MIXED [None]
  - DELIRIUM [None]
  - DRUG ABUSE [None]
